FAERS Safety Report 17127380 (Version 2)
Quarter: 2020Q2

REPORT INFORMATION
  Report Type: Report from Study
  Country: None (occurrence: US)
  Receive Date: 20191209
  Receipt Date: 20200614
  Transmission Date: 20200713
  Serious: Yes (Hospitalization, Other)
  Sender: FDA-Public Use
  Company Number: US-ABBVIE-19K-163-3184494-00

PATIENT

DRUGS (4)
  1. IMBRUVICA [Suspect]
     Active Substance: IBRUTINIB
     Route: 048
  2. IMBRUVICA [Suspect]
     Active Substance: IBRUTINIB
     Indication: CHRONIC LYMPHOCYTIC LEUKAEMIA
     Route: 048
  3. IMBRUVICA [Suspect]
     Active Substance: IBRUTINIB
     Route: 048
  4. IMBRUVICA [Suspect]
     Active Substance: IBRUTINIB
     Route: 048

REACTIONS (33)
  - Neuroendocrine carcinoma of the skin [Unknown]
  - Arrhythmia [Unknown]
  - Atrial fibrillation [Unknown]
  - Musculoskeletal pain [Unknown]
  - Vision blurred [Unknown]
  - Gastrointestinal disorder [Unknown]
  - Rash [Unknown]
  - Dizziness [Unknown]
  - Haemolysis [Unknown]
  - Pancreatitis [Unknown]
  - Injury [Unknown]
  - Night sweats [Unknown]
  - Anosmia [Unknown]
  - Infection [Unknown]
  - Haematotoxicity [Unknown]
  - Hypercalcaemia [Unknown]
  - Fatigue [Unknown]
  - Haemorrhage [Unknown]
  - Dysphagia [Unknown]
  - Headache [Unknown]
  - Pruritus [Unknown]
  - Lung adenocarcinoma [Unknown]
  - Skin cancer [Unknown]
  - Neutropenia [Unknown]
  - Drug interaction [Unknown]
  - Cardiovascular disorder [Unknown]
  - Diarrhoea [Unknown]
  - Hypertension [Unknown]
  - Toxicity to various agents [Unknown]
  - Pyrexia [Unknown]
  - Conjunctivitis [Unknown]
  - Nausea [Unknown]
  - Dyspnoea [Unknown]
